FAERS Safety Report 13388567 (Version 1)
Quarter: 2017Q1

REPORT INFORMATION
  Report Type: Spontaneous
  Country: BR (occurrence: BR)
  Receive Date: 20170330
  Receipt Date: 20170330
  Transmission Date: 20170429
  Serious: Yes (Other)
  Sender: FDA-Public Use
  Company Number: BR-ABBVIE-17K-020-1920058-00

PATIENT
  Sex: Male
  Weight: 73 kg

DRUGS (10)
  1. TENOFOVIR [Concomitant]
     Active Substance: TENOFOVIR
     Indication: PRODUCT USED FOR UNKNOWN INDICATION
  2. SULFADIAZINE. [Concomitant]
     Active Substance: SULFADIAZINE
     Indication: PRODUCT USED FOR UNKNOWN INDICATION
  3. EFAVIRENZ [Suspect]
     Active Substance: EFAVIRENZ
     Indication: HIV INFECTION
     Route: 048
  4. CLONAZEPAM. [Concomitant]
     Active Substance: CLONAZEPAM
     Indication: PRODUCT USED FOR UNKNOWN INDICATION
  5. LAMIVUDINE. [Concomitant]
     Active Substance: LAMIVUDINE
     Indication: PRODUCT USED FOR UNKNOWN INDICATION
  6. ATAZANAVIR [Concomitant]
     Active Substance: ATAZANAVIR
     Indication: PRODUCT USED FOR UNKNOWN INDICATION
  7. ATAZANAVIR [Concomitant]
     Active Substance: ATAZANAVIR
  8. SULFADIAZINE. [Concomitant]
     Active Substance: SULFADIAZINE
     Indication: PRODUCT USED FOR UNKNOWN INDICATION
  9. NORVIR [Suspect]
     Active Substance: RITONAVIR
     Indication: HIV INFECTION
     Route: 048
     Dates: start: 201604
  10. PAROXETINE HYDROCHLORIDE. [Concomitant]
     Active Substance: PAROXETINE HYDROCHLORIDE
     Indication: DEPRESSION

REACTIONS (21)
  - Immunodeficiency [Unknown]
  - Panic reaction [Unknown]
  - Dysphonia [Unknown]
  - Ulcer [Unknown]
  - Syphilis [Unknown]
  - HIV infection [Unknown]
  - Blindness unilateral [Unknown]
  - Crying [Unknown]
  - Cerebrovascular accident [Unknown]
  - Urinary tract infection [Unknown]
  - Malaise [Unknown]
  - Visual acuity reduced [Unknown]
  - Retinopathy [Unknown]
  - Schizophrenia [Unknown]
  - Unevaluable event [Unknown]
  - Eye contusion [Unknown]
  - Visual impairment [Unknown]
  - Meningitis [Unknown]
  - Eye disorder [Unknown]
  - Liver disorder [Unknown]
  - Gait disturbance [Unknown]
